APPROVED DRUG PRODUCT: EPZICOM
Active Ingredient: ABACAVIR SULFATE; LAMIVUDINE
Strength: EQ 600MG BASE;300MG **Federal Register determination that product was not discontinued or withdrawn for safety or effectiveness reasons**
Dosage Form/Route: TABLET;ORAL
Application: N021652 | Product #001
Applicant: VIIV HEALTHCARE CO
Approved: Aug 2, 2004 | RLD: Yes | RS: No | Type: DISCN